FAERS Safety Report 15819550 (Version 1)
Quarter: 2019Q1

REPORT INFORMATION
  Report Type: Spontaneous
  Country: GB (occurrence: GB)
  Receive Date: 20190114
  Receipt Date: 20190114
  Transmission Date: 20190417
  Serious: Yes (Hospitalization)
  Sender: FDA-Public Use
  Company Number: GB-TEVA-2019-GB-998332

PATIENT
  Age: 64 Year
  Sex: Male

DRUGS (13)
  1. AMLODIPINE [Concomitant]
     Active Substance: AMLODIPINE BESYLATE
     Dosage: 5 MILLIGRAM DAILY;
     Route: 048
  2. PREGABALIN. [Concomitant]
     Active Substance: PREGABALIN
     Dosage: 600 MILLIGRAM DAILY;
     Route: 048
  3. PROPRANOLOL [Concomitant]
     Active Substance: PROPRANOLOL HYDROCHLORIDE
     Dosage: 120 MILLIGRAM DAILY;
     Route: 048
  4. CARBAMAZEPINE. [Concomitant]
     Active Substance: CARBAMAZEPINE
     Dosage: 600 MILLIGRAM DAILY; 1 IN THE MORNING, 2 AT NIGHT.
     Route: 048
  5. CLOPIDOGREL [Suspect]
     Active Substance: CLOPIDOGREL BISULFATE
     Indication: CEREBROVASCULAR ACCIDENT
     Dosage: 75 MILLIGRAM DAILY; IN THE MORNING
     Route: 048
  6. CODEINE [Concomitant]
     Active Substance: CODEINE
     Dosage: 1-2 4 TIMES A DAY
     Route: 048
  7. PERINDOPRIL TERT-BUTYLAMINE [Concomitant]
     Active Substance: PERINDOPRIL ERBUMINE
     Dosage: 4 MILLIGRAM DAILY;
     Route: 048
  8. ATORVASTATIN [Concomitant]
     Active Substance: ATORVASTATIN
     Dosage: 40 MILLIGRAM DAILY;
     Route: 048
  9. CLOBAZAM. [Concomitant]
     Active Substance: CLOBAZAM
     Dosage: 15 MILLIGRAM DAILY; AT NIGHT
     Route: 048
  10. CASSIA [Concomitant]
     Dosage: 15 MG,AT NIGHT
     Route: 048
  11. PARACETAMOL [Concomitant]
     Active Substance: ACETAMINOPHEN
     Dosage: 500 MG, 1-2 4 TIMES A DAY
     Route: 048
  12. DIOCTYL [Concomitant]
     Active Substance: DOCUSATE SODIUM
     Dosage: 200 MG TWICE DAILY
     Route: 048
  13. CALCICHEW D3 [Concomitant]
     Active Substance: CALCIUM\CHOLECALCIFEROL
     Dosage: 3 DOSAGE FORMS DAILY;
     Route: 048

REACTIONS (1)
  - Cerebral haemorrhage [Recovered/Resolved]
